FAERS Safety Report 23865757 (Version 1)
Quarter: 2024Q2

REPORT INFORMATION
  Report Type: Spontaneous
  Country: DE (occurrence: DE)
  Receive Date: 20240517
  Receipt Date: 20240517
  Transmission Date: 20240715
  Serious: Yes (Other)
  Sender: FDA-Public Use
  Company Number: DE-BoehringerIngelheim-2024-BI-027976

PATIENT
  Sex: Male

DRUGS (2)
  1. IPRATROPIUM BROMIDE [Suspect]
     Active Substance: IPRATROPIUM BROMIDE\IPRATROPIUM BROMIDE ANHYDROUS
     Indication: Chronic obstructive pulmonary disease
     Dosage: INHALATION OF SELFMIXED SOLUTION OF ATROVENT AND SALBUTAMOL
     Route: 055
  2. ALBUTEROL [Concomitant]
     Active Substance: ALBUTEROL
     Indication: Chronic obstructive pulmonary disease
     Dosage: INHALATION OF SELFMIXED SOLUTION OF ATROVENT AND SALBUTAMOL
     Route: 055

REACTIONS (3)
  - Neoplasm malignant [Unknown]
  - Wrong technique in product usage process [Unknown]
  - Intraocular pressure increased [Not Recovered/Not Resolved]
